FAERS Safety Report 6828741-7 (Version None)
Quarter: 2010Q3

REPORT INFORMATION
  Report Type: 
  Country: None (occurrence: None)
  Receive Date: 20100709
  Receipt Date: 20070216
  Transmission Date: 20110219
  Serious: No
  Sender: FDA-Public Use
  Company Number: US-PFIZER INC-2007013300

PATIENT
  Sex: Female
  Weight: 63.5 kg

DRUGS (10)
  1. CHANTIX [Suspect]
     Indication: SMOKING CESSATION THERAPY
     Dates: start: 20070204
  2. FOSAMAX [Concomitant]
  3. HYDROCODONE BITARTRATE [Concomitant]
  4. DIOVAN HCT [Concomitant]
  5. ALL OTHER THERAPEUTIC PRODUCTS [Concomitant]
  6. BUPROPION HCL [Concomitant]
  7. NABUMETONE [Concomitant]
  8. PRILOSEC [Concomitant]
  9. VITAMINS [Concomitant]
  10. CALCIUM CARBONATE [Concomitant]

REACTIONS (5)
  - ABNORMAL DREAMS [None]
  - ASTHENIA [None]
  - LISTLESS [None]
  - NAUSEA [None]
  - SOMNOLENCE [None]
